FAERS Safety Report 4637884-8 (Version None)
Quarter: 2005Q2

REPORT INFORMATION
  Report Type: 
  Country: None (occurrence: None)
  Receive Date: 20050418
  Receipt Date: 20040325
  Transmission Date: 20051028
  Serious: Yes (Congenital Anomaly)
  Sender: FDA-Public Use
  Company Number: US-ROCHE-363057

PATIENT
  Sex: Male
  Weight: 3.1 kg

DRUGS (4)
  1. PEG-INTERFERON A-2A (RO 25-8310) [Suspect]
     Indication: DRUG USE FOR UNKNOWN INDICATION
     Dates: start: 20030915, end: 20031215
  2. COPEGUS [Suspect]
     Indication: DRUG USE FOR UNKNOWN INDICATION
     Dates: start: 20030915, end: 20031215
  3. ACIPHEX [Concomitant]
  4. INFERGEN [Concomitant]
     Dosage: BEFORE 21 APR 2003.
     Dates: start: 20030421

REACTIONS (7)
  - CARDIOMYOPATHY [None]
  - DRUG EXPOSURE DURING PREGNANCY [None]
  - FOETAL DISORDER [None]
  - LIMB MALFORMATION [None]
  - NORMAL NEWBORN [None]
  - PREMATURE LABOUR [None]
  - SKULL MALFORMATION [None]
